FAERS Safety Report 21651287 (Version 2)
Quarter: 2022Q4

REPORT INFORMATION
  Report Type: Spontaneous
  Country: JP (occurrence: JP)
  Receive Date: 20221128
  Receipt Date: 20221227
  Transmission Date: 20230112
  Serious: Yes (Other)
  Sender: FDA-Public Use
  Company Number: JP-MSD-M2022-49583

PATIENT
  Age: 78 Year
  Sex: Female

DRUGS (10)
  1. LAGEVRIO [Suspect]
     Active Substance: MOLNUPIRAVIR
     Indication: COVID-19 treatment
     Dosage: 800 MILLIGRAM, BID
     Route: 048
     Dates: start: 20221102, end: 20221104
  2. VONOPRAZAN FUMARATE [Concomitant]
     Active Substance: VONOPRAZAN FUMARATE
     Dosage: 10 MILLIGRAM
     Route: 048
  3. ALFACALCIDOL [Concomitant]
     Active Substance: ALFACALCIDOL
     Dosage: 1 MICROGRAM
     Route: 048
  4. FURSULTIAMINE [Concomitant]
     Active Substance: FURSULTIAMINE
     Dosage: 100 MILLIGRAM
     Route: 048
  5. OMEGA-3-ACID ETHYL ESTERS [Concomitant]
     Active Substance: OMEGA-3-ACID ETHYL ESTERS
     Dosage: 2 MILLIGRAM
     Route: 048
  6. ZINC [Concomitant]
     Active Substance: ZINC
     Dosage: 100 MILLIGRAM
     Route: 048
  7. BIO-THREE [Concomitant]
     Active Substance: HERBALS
     Dosage: UNK
     Route: 048
  8. REBAMIPIDE [Concomitant]
     Active Substance: REBAMIPIDE
     Dosage: UNK
     Route: 048
  9. METHYLCOBALAMIN [Concomitant]
     Active Substance: METHYLCOBALAMIN
     Dosage: UNK
     Route: 048
  10. ADETPHOS [Concomitant]
     Active Substance: ADENOSINE TRIPHOSPHATE
     Dosage: 3 GRAM
     Route: 048

REACTIONS (2)
  - Deafness unilateral [Unknown]
  - Erythema [Unknown]

NARRATIVE: CASE EVENT DATE: 20221104
